FAERS Safety Report 14233901 (Version 2)
Quarter: 2017Q4

REPORT INFORMATION
  Report Type: Spontaneous
  Country: BR (occurrence: BR)
  Receive Date: 20171129
  Receipt Date: 20171130
  Transmission Date: 20180321
  Serious: Yes (Hospitalization, Other)
  Sender: FDA-Public Use
  Company Number: BR-PFIZER INC-2017506754

PATIENT
  Age: 61 Year
  Sex: Male

DRUGS (1)
  1. XALATAN [Suspect]
     Active Substance: LATANOPROST
     Dosage: UNK

REACTIONS (5)
  - Coma [Recovered/Resolved with Sequelae]
  - Post procedural infection [Recovered/Resolved with Sequelae]
  - Mental impairment [Unknown]
  - Cardiac procedure complication [Recovered/Resolved with Sequelae]
  - Memory impairment [Unknown]

NARRATIVE: CASE EVENT DATE: 2017
